FAERS Safety Report 11756987 (Version 1)
Quarter: 2015Q4

REPORT INFORMATION
  Report Type: Spontaneous
  Country: US (occurrence: US)
  Receive Date: 20151120
  Receipt Date: 20151120
  Transmission Date: 20160304
  Serious: Yes (Hospitalization, Other)
  Sender: FDA-Public Use
  Company Number: US-ZYDUS-009497

PATIENT
  Age: 49 Year
  Sex: Female

DRUGS (14)
  1. DOXYLAMINE/DOXYLAMINE SUCCINATE [Suspect]
     Active Substance: DOXYLAMINE SUCCINATE
     Indication: NASOPHARYNGITIS
  2. LOMITAPIDE [Suspect]
     Active Substance: LOMITAPIDE MESYLATE
     Indication: HYPERCHOLESTEROLAEMIA
  3. EZETIMIBE. [Concomitant]
     Active Substance: EZETIMIBE
     Indication: HYPERCHOLESTEROLAEMIA
  4. COLESEVELAM [Concomitant]
     Active Substance: COLESEVELAM
     Indication: HYPERCHOLESTEROLAEMIA
  5. PHENYLEPHRINE [Suspect]
     Active Substance: PHENYLEPHRINE\PHENYLEPHRINE HYDROCHLORIDE
     Indication: NASOPHARYNGITIS
  6. PARACETAMOL [Suspect]
     Active Substance: ACETAMINOPHEN
     Indication: NASOPHARYNGITIS
  7. WARFARIN [Suspect]
     Active Substance: WARFARIN
  8. DEXTROMETHORPHAN [Suspect]
     Active Substance: DEXTROMETHORPHAN
     Indication: NASOPHARYNGITIS
  9. ACETYLSALICYLIC ACID [Concomitant]
     Active Substance: ASPIRIN
  10. IRON [Concomitant]
     Active Substance: IRON
  11. METOPROLOL [Concomitant]
     Active Substance: METOPROLOL
  12. GUAIFENESIN. [Suspect]
     Active Substance: GUAIFENESIN
     Indication: NASOPHARYNGITIS
  13. PSEUDOEPHEDRINE [Suspect]
     Active Substance: PSEUDOEPHEDRINE
     Indication: NASOPHARYNGITIS
  14. ROSUVASTATIN [Concomitant]
     Active Substance: ROSUVASTATIN
     Indication: HYPERCHOLESTEROLAEMIA

REACTIONS (18)
  - Subdural haematoma [Recovered/Resolved]
  - Haemorrhage [Recovered/Resolved]
  - Anaemia [None]
  - International normalised ratio increased [Unknown]
  - Viral infection [None]
  - Nausea [Unknown]
  - Hypovolaemic shock [None]
  - Myocardial infarction [None]
  - Cardiac failure congestive [None]
  - Weight decreased [None]
  - Cerebrovascular accident [Unknown]
  - Hepatic enzyme increased [Recovered/Resolved]
  - Alanine aminotransferase increased [None]
  - Hepatotoxicity [None]
  - Self-medication [None]
  - Aspartate aminotransferase increased [None]
  - Menorrhagia [None]
  - Drug dose omission [None]
